FAERS Safety Report 7552560-X (Version None)
Quarter: 2011Q2

REPORT INFORMATION
  Report Type: 
  Country: None (occurrence: None)
  Receive Date: 20110616
  Receipt Date: 20110608
  Transmission Date: 20111010
  Serious: Yes (Other)
  Sender: FDA-Public Use
  Company Number: US-SANOFI-AVENTIS-2011SA037115

PATIENT
  Sex: Female

DRUGS (1)
  1. CLOMID [Suspect]
     Indication: INFERTILITY
     Route: 065

REACTIONS (9)
  - DRUG EXPOSURE DURING PREGNANCY [None]
  - ARTHROPATHY [None]
  - SCOLIOSIS [None]
  - MITRAL VALVE PROLAPSE [None]
  - AORTIC VALVE DISEASE [None]
  - BONE DEVELOPMENT ABNORMAL [None]
  - JAW DISORDER [None]
  - CARDIAC VALVE DISEASE [None]
  - MIGRAINE [None]
